FAERS Safety Report 11938936 (Version 1)
Quarter: 2016Q1

REPORT INFORMATION
  Report Type: Spontaneous
  Country: US (occurrence: US)
  Receive Date: 20160122
  Receipt Date: 20160122
  Transmission Date: 20160526
  Serious: No
  Sender: FDA-Public Use
  Company Number: US-LEO PHARMA-232075

PATIENT
  Sex: Female

DRUGS (1)
  1. DAIVOBET [Suspect]
     Active Substance: BETAMETHASONE DIPROPIONATE\CALCIPOTRIENE
     Indication: ACNE
     Route: 061

REACTIONS (5)
  - Application site erythema [Recovered/Resolved]
  - Therapeutic response unexpected [Recovered/Resolved]
  - Product use issue [Recovered/Resolved]
  - Application site reaction [Recovered/Resolved]
  - Hypersensitivity [Recovered/Resolved]
